FAERS Safety Report 21213233 (Version 1)
Quarter: 2022Q3

REPORT INFORMATION
  Report Type: Spontaneous
  Country: US (occurrence: US)
  Receive Date: 20220815
  Receipt Date: 20220815
  Transmission Date: 20221026
  Serious: No
  Sender: FDA-Public Use
  Company Number: US-SANOFI-01223889

PATIENT
  Age: 63 Year
  Sex: Male

DRUGS (2)
  1. MULTAQ [Suspect]
     Active Substance: DRONEDARONE
     Indication: Cryotherapy
     Dosage: UNK UNK, Q12H
     Dates: start: 202206
  2. AMIODARONE [Concomitant]
     Active Substance: AMIODARONE

REACTIONS (2)
  - Heart rate decreased [Not Recovered/Not Resolved]
  - Wrong technique in product usage process [Unknown]

NARRATIVE: CASE EVENT DATE: 20220101
